FAERS Safety Report 17926003 (Version 1)
Quarter: 2020Q2

REPORT INFORMATION
  Report Type: Spontaneous
  Country: PL (occurrence: PL)
  Receive Date: 20200622
  Receipt Date: 20200622
  Transmission Date: 20200714
  Serious: Yes (Other)
  Sender: FDA-Public Use
  Company Number: NVSC2020PL171861

PATIENT
  Age: 67 Year
  Sex: Female

DRUGS (3)
  1. RYDAPT [Suspect]
     Active Substance: MIDOSTAURIN
     Indication: ACUTE MYELOID LEUKAEMIA
     Dosage: UNK
     Route: 065
     Dates: start: 20200130
  2. CYTARABINE. [Suspect]
     Active Substance: CYTARABINE
     Indication: ACUTE MYELOID LEUKAEMIA
     Dosage: UNK
     Route: 065
     Dates: start: 20200514
  3. RYDAPT [Suspect]
     Active Substance: MIDOSTAURIN
     Dosage: UNK
     Route: 065
     Dates: start: 20200318

REACTIONS (8)
  - Escherichia sepsis [Unknown]
  - Pyrexia [Unknown]
  - Blood lactate dehydrogenase increased [Unknown]
  - Acute myeloid leukaemia recurrent [Unknown]
  - Myeloblast present [Unknown]
  - Pneumonia [Unknown]
  - Platelet count decreased [Unknown]
  - Inflammatory marker increased [Unknown]
